FAERS Safety Report 5207788-0 (Version None)
Quarter: 2006Q4

REPORT INFORMATION
  Report Type: 
  Country: None (occurrence: None)
  Receive Date: 20061030
  Receipt Date: 20060814
  Transmission Date: 20070319
  Serious: No
  Sender: FDA-Public Use
  Company Number: 256109

PATIENT
  Age: 65 Year
  Sex: Female
  Weight: 77.1 kg

DRUGS (4)
  1. LEVEMIR [Suspect]
     Indication: INSULIN-REQUIRING TYPE II DIABETES MELLITUS
     Dosage: 55 IU, SUBCUTANEOUS
     Route: 058
     Dates: start: 20060730
  2. ZANTAC [Concomitant]
  3. LIPITOR [Concomitant]
  4. IMODIUM A-D [Concomitant]

REACTIONS (1)
  - STOMACH DISCOMFORT [None]
